FAERS Safety Report 12588696 (Version 1)
Quarter: 2016Q3

REPORT INFORMATION
  Report Type: Report from Study
  Country: US (occurrence: US)
  Receive Date: 20160725
  Receipt Date: 20160725
  Transmission Date: 20161109
  Serious: No
  Sender: FDA-Public Use
  Company Number: US-009507513-1607USA008142

PATIENT
  Sex: Female

DRUGS (1)
  1. NUVARING [Suspect]
     Active Substance: ETHINYL ESTRADIOL\ETONOGESTREL
     Indication: CONTRACEPTION
     Dosage: SINGLE DOSE (11.7MG ETONOGESTREL/2.7 MG ETHINYL ESTRADIOL), EVERY THREE WEEKS
     Route: 067

REACTIONS (2)
  - Libido decreased [Recovering/Resolving]
  - Hormone level abnormal [Recovering/Resolving]
